FAERS Safety Report 5683522-5 (Version None)
Quarter: 2008Q1

REPORT INFORMATION
  Report Type: 
  Country: None (occurrence: None)
  Receive Date: 20080326
  Receipt Date: 20080310
  Transmission Date: 20080703
  Serious: Yes (Death, Other)
  Sender: FDA-Public Use
  Company Number: 2008US000711

PATIENT
  Age: 70 Year
  Sex: Female

DRUGS (4)
  1. AMBISOME [Suspect]
     Indication: CANDIDIASIS
     Dosage: 100 MG, UID/QD
  2. FIRSTCIN (CEFOZOPRAN HYDROCHLORIDE) [Concomitant]
  3. CARBENIN (BETAMIPRON, PANIPENEM) [Concomitant]
  4. PIPERACILLIN SODIUM [Concomitant]

REACTIONS (2)
  - CANDIDIASIS [None]
  - DRUG INEFFECTIVE [None]
